FAERS Safety Report 6230866-4 (Version None)
Quarter: 2009Q2

REPORT INFORMATION
  Report Type: 
  Country: None (occurrence: None)
  Receive Date: 20090616
  Receipt Date: 20090604
  Transmission Date: 20091009
  Serious: Yes (Hospitalization, Other)
  Sender: FDA-Public Use
  Company Number: US-JNJFOC-20090602698

PATIENT
  Age: 28 Year
  Sex: Female

DRUGS (7)
  1. INVEGA [Suspect]
     Indication: DRUG USE FOR UNKNOWN INDICATION
     Route: 048
  2. ACETAMINOPHEN [Concomitant]
  3. WARFARIN SODIUM [Concomitant]
  4. ASPIRIN [Concomitant]
  5. BUSPAR [Concomitant]
  6. LAMICTAL [Concomitant]
  7. VITAMIN B COMPLEX CAP [Concomitant]

REACTIONS (1)
  - ARTERIAL THROMBOSIS [None]
